FAERS Safety Report 17039429 (Version 1)
Quarter: 2019Q4

REPORT INFORMATION
  Report Type: Spontaneous
  Country: US (occurrence: US)
  Receive Date: 20191115
  Receipt Date: 20191115
  Transmission Date: 20200122
  Serious: No
  Sender: FDA-Public Use
  Company Number: US-BAUSCH-BL-2019-058561

PATIENT
  Age: 74 Year
  Sex: Female
  Weight: 81.72 kg

DRUGS (7)
  1. PROLENSA [Suspect]
     Active Substance: BROMFENAC SODIUM
     Dosage: IN LEFT EYE
     Route: 047
     Dates: start: 20191015, end: 20191018
  2. PROLENSA [Suspect]
     Active Substance: BROMFENAC SODIUM
     Indication: POSTOPERATIVE CARE
     Dosage: IN RIGHT EYE
     Route: 047
     Dates: start: 20191009, end: 20191015
  3. PROLENSA [Suspect]
     Active Substance: BROMFENAC SODIUM
     Indication: PREOPERATIVE CARE
     Dosage: IN RIGHT EYE
     Route: 047
     Dates: start: 20190929, end: 2019
  4. PROLENSA [Suspect]
     Active Substance: BROMFENAC SODIUM
     Dosage: IN RIGHT EYE
     Route: 047
     Dates: start: 20191016, end: 20191018
  5. PREDNISOLONE. [Concomitant]
     Active Substance: PREDNISOLONE
     Indication: PRODUCT USED FOR UNKNOWN INDICATION
  6. MOXIFLOXACIN. [Concomitant]
     Active Substance: MOXIFLOXACIN
     Indication: PRODUCT USED FOR UNKNOWN INDICATION
  7. PROLENSA [Suspect]
     Active Substance: BROMFENAC SODIUM
     Dosage: IN LEFT EYE
     Route: 047
     Dates: start: 20191006, end: 20191014

REACTIONS (8)
  - Lymphadenopathy [Not Recovered/Not Resolved]
  - Bronchitis [Not Recovered/Not Resolved]
  - Product prescribing error [Unknown]
  - Depression [Not Recovered/Not Resolved]
  - Extra dose administered [Unknown]
  - Abdominal distension [Not Recovered/Not Resolved]
  - Headache [Not Recovered/Not Resolved]
  - Reaction to preservatives [Not Recovered/Not Resolved]

NARRATIVE: CASE EVENT DATE: 20190929
